FAERS Safety Report 26055169 (Version 1)
Quarter: 2025Q4

REPORT INFORMATION
  Report Type: Spontaneous
  Country: BR (occurrence: BR)
  Receive Date: 20251117
  Receipt Date: 20251117
  Transmission Date: 20260117
  Serious: Yes (Other)
  Sender: NOVO NORDISK
  Company Number: BR-NOVOPROD-1560236

PATIENT
  Sex: Male

DRUGS (3)
  1. WEGOVY [Suspect]
     Active Substance: SEMAGLUTIDE
     Indication: Product used for unknown indication
     Dosage: UNK
     Dates: start: 2024, end: 202501
  2. OZEMPIC [Suspect]
     Active Substance: SEMAGLUTIDE
     Indication: Product used for unknown indication
     Dosage: UNK
     Dates: start: 2018, end: 202501
  3. SAXENDA [Suspect]
     Active Substance: LIRAGLUTIDE
     Indication: Product used for unknown indication
     Dosage: UNK
     Dates: end: 202501

REACTIONS (2)
  - Hiatus hernia [Unknown]
  - Barrett^s oesophagus [Unknown]

NARRATIVE: CASE EVENT DATE: 20250201
